FAERS Safety Report 5489861-5 (Version None)
Quarter: 2007Q4

REPORT INFORMATION
  Report Type: 
  Country: None (occurrence: None)
  Receive Date: 20071018
  Receipt Date: 20070323
  Transmission Date: 20080405
  Serious: Yes (Other)
  Sender: FDA-Public Use
  Company Number: US-PFIZER INC-2007067191

PATIENT
  Sex: Female
  Weight: 60.8 kg

DRUGS (14)
  1. DETROL LA [Interacting]
     Indication: URINARY INCONTINENCE
     Route: 048
  2. TOPROL-XL [Interacting]
     Indication: BLOOD PRESSURE
     Route: 048
     Dates: start: 20060701, end: 20070301
  3. TOPROL-XL [Interacting]
     Indication: HYPERTENSION
  4. BENICAR [Suspect]
     Indication: BLOOD PRESSURE
     Dates: start: 20070301, end: 20070101
  5. BENICAR [Suspect]
     Indication: HYPERTENSION
  6. INDERAL [Interacting]
     Indication: BLOOD PRESSURE
  7. BETA BLOCKING AGENTS [Interacting]
     Indication: BLOOD PRESSURE
  8. ANTIHYPERTENSIVES [Suspect]
     Indication: BLOOD PRESSURE
  9. PREMPRO [Concomitant]
     Indication: OESTROGEN REPLACEMENT THERAPY
     Route: 048
  10. TERAZOSIN HCL [Concomitant]
     Indication: BLOOD PRESSURE
     Route: 048
  11. CLONIDINE [Concomitant]
     Indication: HYPERTENSION
     Route: 048
  12. LORAZEPAM [Concomitant]
     Indication: ANXIETY
     Route: 048
  13. LEXAPRO [Concomitant]
     Indication: ANXIETY
     Route: 048
  14. ZETIA [Concomitant]
     Dates: start: 20070601

REACTIONS (12)
  - ANAPHYLACTIC REACTION [None]
  - BLOOD PRESSURE INCREASED [None]
  - CHILLS [None]
  - DRUG INTERACTION [None]
  - FLUSHING [None]
  - GAIT DISTURBANCE [None]
  - HEADACHE [None]
  - HEART RATE INCREASED [None]
  - PARAESTHESIA [None]
  - PHAEOCHROMOCYTOMA [None]
  - SPEECH DISORDER [None]
  - TREMOR [None]
